FAERS Safety Report 5690184-X (Version None)
Quarter: 2008Q2

REPORT INFORMATION
  Report Type: 
  Country: None (occurrence: None)
  Receive Date: 20080401
  Receipt Date: 20080320
  Transmission Date: 20081010
  Serious: Yes (Other)
  Sender: FDA-Public Use
  Company Number: HQWYE091117MAR03

PATIENT
  Sex: Female

DRUGS (1)
  1. PREMPRO [Suspect]
     Dosage: 1 TABLET DAILY; 0.625MG/UNSPECIFIED
     Route: 048
     Dates: start: 20000601, end: 20020901

REACTIONS (1)
  - BREAST CANCER METASTATIC [None]
